FAERS Safety Report 20962510 (Version 2)
Quarter: 2022Q3

REPORT INFORMATION
  Report Type: Spontaneous
  Country: JP (occurrence: JP)
  Receive Date: 20220615
  Receipt Date: 20220714
  Transmission Date: 20221026
  Serious: No
  Sender: FDA-Public Use
  Company Number: JP-GLAXOSMITHKLINE-JP2022JPN091939

PATIENT

DRUGS (9)
  1. SOTROVIMAB [Suspect]
     Active Substance: SOTROVIMAB
     Indication: COVID-19
     Dosage: 500 MG
     Route: 042
     Dates: start: 20220607
  2. PRANLUKAST [Suspect]
     Active Substance: PRANLUKAST
     Dosage: 450 MG
     Route: 048
     Dates: start: 20220530, end: 20220606
  3. DEXTROMETHORPHAN HYDROBROMIDE [Suspect]
     Active Substance: DEXTROMETHORPHAN HYDROBROMIDE
     Dosage: 45 MG
     Route: 048
     Dates: start: 20220606, end: 20220620
  4. CARBOCYSTEINE [Suspect]
     Active Substance: CARBOCYSTEINE
     Dosage: 750 MG
     Route: 048
     Dates: start: 20220606, end: 20220620
  5. CLENBUTEROL HYDROCHLORIDE [Suspect]
     Active Substance: CLENBUTEROL HYDROCHLORIDE
     Dosage: 40 ?G
     Route: 048
     Dates: start: 20220606, end: 20220616
  6. DEXCHLORPHENIRAMINE MALEATE [Suspect]
     Active Substance: DEXCHLORPHENIRAMINE MALEATE
     Dosage: 12 MG
     Route: 048
     Dates: start: 20220608, end: 20220610
  7. OLOPATADINE HYDROCHLORIDE [Suspect]
     Active Substance: OLOPATADINE HYDROCHLORIDE
     Dosage: 10 MG
     Route: 048
     Dates: start: 20220530, end: 20220606
  8. TRANSAMIN [Suspect]
     Active Substance: TRANEXAMIC ACID
     Dosage: 1000 MG
     Route: 048
     Dates: start: 20220530, end: 20220605
  9. CEFCAPENE PIVOXIL [Suspect]
     Active Substance: CEFCAPENE PIVOXIL
     Dosage: 300 MG
     Route: 048
     Dates: start: 20211115, end: 20211119

REACTIONS (2)
  - Caesarean section [Unknown]
  - Exposure during pregnancy [Unknown]

NARRATIVE: CASE EVENT DATE: 20220622
